FAERS Safety Report 8992472 (Version 1)
Quarter: 2012Q4

REPORT INFORMATION
  Report Type: 
  Country: ES (occurrence: ES)
  Receive Date: 20121231
  Receipt Date: 20121231
  Transmission Date: 20130627
  Serious: Yes (Hospitalization, Other)
  Sender: FDA-Public Use
  Company Number: ES-ELI_LILLY_AND_COMPANY-ES201212006817

PATIENT
  Age: 64 Year
  Sex: Female
  Weight: 70 kg

DRUGS (16)
  1. FORSTEO [Suspect]
     Indication: OSTEOPOROSIS
     Dosage: 20 u, qd
     Route: 058
     Dates: start: 20110110
  2. FUROSEMID [Concomitant]
     Indication: DIURETIC THERAPY
     Dosage: 80 mg, qd
     Route: 048
  3. OMEPRAZOL [Concomitant]
     Indication: GASTRITIS PROPHYLAXIS
     Dosage: 20 mg, qd
     Route: 048
  4. METAMIZOLE [Concomitant]
     Indication: ANALGESIC THERAPY
     Dosage: UNK, prn
     Route: 048
  5. HIDROMORFONA [Concomitant]
     Indication: ANALGESIC THERAPY
     Dosage: 12 mg, qd
     Route: 048
  6. DIGOXIN [Concomitant]
     Indication: CARDIAC DISORDER
     Dosage: 0.25 mg, other
     Route: 048
  7. FLUOXETINE [Concomitant]
     Indication: ANTIDEPRESSANT THERAPY
     Dosage: 40 mg, qd
     Route: 048
  8. KETAZOLAM [Concomitant]
     Indication: RELAXATION THERAPY
     Route: 048
  9. SINTROM [Concomitant]
     Indication: ANTICOAGULANT THERAPY
     Dosage: 4 mg, prn
     Route: 048
  10. SIMVASTATIN [Concomitant]
     Indication: ANTICOAGULANT THERAPY
     Dosage: 20 mg, qd
     Route: 048
  11. OXYGEN [Concomitant]
     Dosage: 1.5 l, each evening
  12. SPIRONOLACTONE [Concomitant]
     Dosage: 100 mg, qd
     Route: 048
  13. RAMIPRIL [Concomitant]
     Dosage: 250 mg, qd
     Route: 048
  14. CLORTALIDONA [Concomitant]
     Dosage: 50 mg, qd
     Route: 048
  15. CALCIFEDIOL [Concomitant]
     Dosage: 266 mg, other
     Route: 048
  16. ALOPURINOL [Concomitant]
     Dosage: 300 mg, qd
     Route: 048

REACTIONS (5)
  - Cerebrovascular accident [Recovered/Resolved]
  - Cerebrovascular accident [Recovered/Resolved]
  - Abdominal pain [Not Recovered/Not Resolved]
  - Gastrointestinal inflammation [Not Recovered/Not Resolved]
  - Anticoagulation drug level above therapeutic [Unknown]
